FAERS Safety Report 10962132 (Version 1)
Quarter: 2015Q1

REPORT INFORMATION
  Report Type: Spontaneous
  Country: US (occurrence: US)
  Receive Date: 20150327
  Receipt Date: 20150327
  Transmission Date: 20150721
  Serious: No
  Sender: FDA-Public Use
  Company Number: US-PFIZER INC-2015106350

PATIENT
  Sex: Female

DRUGS (2)
  1. PALBOCICLIB [Suspect]
     Active Substance: PALBOCICLIB
     Dosage: UNK, CYCLIC 3 WEEKS ON/ 1 WEEK OFF
  2. LETROZOLE. [Suspect]
     Active Substance: LETROZOLE
     Dosage: UNK, CYCLIC 3 WEEKS ON/ 1 WEEK OFF

REACTIONS (1)
  - Oral pain [Recovered/Resolved]
